FAERS Safety Report 5613958-X (Version None)
Quarter: 2008Q1

REPORT INFORMATION
  Report Type: 
  Country: None (occurrence: None)
  Receive Date: 20080205
  Receipt Date: 20080124
  Transmission Date: 20080703
  Serious: Yes (Hospitalization, Disabling, Other)
  Sender: FDA-Public Use
  Company Number: US-ROCHE-414410

PATIENT
  Age: 20 Year
  Sex: Female
  Weight: 69.9 kg

DRUGS (5)
  1. ACCUTANE [Suspect]
     Route: 048
     Dates: start: 19990716, end: 19990824
  2. ACCUTANE [Suspect]
     Route: 048
     Dates: start: 19990825, end: 19991018
  3. ACCUTANE [Suspect]
     Route: 048
     Dates: start: 19991019, end: 19991114
  4. ACCUTANE [Suspect]
     Route: 048
     Dates: start: 19991115, end: 20000110
  5. PREDNISONE TAB [Concomitant]
     Route: 048
     Dates: start: 19990716

REACTIONS (22)
  - ALOPECIA [None]
  - ANXIETY [None]
  - COLITIS [None]
  - CROHN'S DISEASE [None]
  - DEPRESSION [None]
  - DRY SKIN [None]
  - ENDOMETRIOSIS [None]
  - EPISTAXIS [None]
  - FIBROADENOMA OF BREAST [None]
  - GASTRITIS [None]
  - GASTROINTESTINAL DISORDER [None]
  - INFLAMMATORY BOWEL DISEASE [None]
  - INSOMNIA [None]
  - INTESTINAL HAEMORRHAGE [None]
  - IRRITABLE BOWEL SYNDROME [None]
  - LIP DRY [None]
  - OESOPHAGITIS ULCERATIVE [None]
  - OVARIAN CYST [None]
  - PANIC ATTACK [None]
  - PAPILLOMA VIRAL INFECTION [None]
  - PAROVARIAN CYST [None]
  - UTERINE POLYP [None]
